FAERS Safety Report 11988068 (Version 1)
Quarter: 2016Q1

REPORT INFORMATION
  Report Type: Spontaneous
  Country: US (occurrence: US)
  Receive Date: 20160202
  Receipt Date: 20160202
  Transmission Date: 20160526
  Serious: Yes (Other)
  Sender: FDA-Public Use
  Company Number: US-WATSON-2016-02091

PATIENT
  Age: 46 Year
  Sex: Male

DRUGS (4)
  1. CARBAMAZEPINE. [Concomitant]
     Active Substance: CARBAMAZEPINE
     Indication: DEPRESSION
     Dosage: UNK
     Route: 065
  2. LITHIUM CITRATE (UNKNOWN) [Suspect]
     Active Substance: LITHIUM CITRATE
     Indication: DEPRESSION
     Dosage: UNK
     Route: 065
     Dates: start: 198906
  3. HALOPERIDOL (WATSON LABORATORIES) [Suspect]
     Active Substance: HALOPERIDOL
     Dosage: 2 MG, BID
     Route: 065
  4. HALOPERIDOL (WATSON LABORATORIES) [Suspect]
     Active Substance: HALOPERIDOL
     Indication: DEPRESSION
     Dosage: 2 MG, TID
     Route: 065
     Dates: start: 198901

REACTIONS (2)
  - Dystonia [Unknown]
  - Neuroleptic malignant syndrome [Recovered/Resolved]

NARRATIVE: CASE EVENT DATE: 198901
